FAERS Safety Report 19609816 (Version 1)
Quarter: 2021Q3

REPORT INFORMATION
  Report Type: Spontaneous
  Country: JP (occurrence: JP)
  Receive Date: 20210726
  Receipt Date: 20210726
  Transmission Date: 20211014
  Serious: Yes (Other)
  Sender: FDA-Public Use
  Company Number: JP-PFIZER INC-2021881719

PATIENT
  Age: 65 Year
  Sex: Female

DRUGS (4)
  1. MEDROXYPROGESTERONE ACETATE. [Suspect]
     Active Substance: MEDROXYPROGESTERONE ACETATE
     Indication: BREAST CANCER RECURRENT
  2. MEDROXYPROGESTERONE ACETATE. [Suspect]
     Active Substance: MEDROXYPROGESTERONE ACETATE
     Indication: BREAST CANCER METASTATIC
  3. DOXIFLURIDINE [Concomitant]
     Active Substance: DOXIFLURIDINE
     Indication: BREAST CANCER METASTATIC
  4. DOXIFLURIDINE [Concomitant]
     Active Substance: DOXIFLURIDINE
     Indication: BREAST CANCER RECURRENT

REACTIONS (3)
  - Pulmonary thrombosis [Unknown]
  - Drug effective for unapproved indication [Unknown]
  - Off label use [Unknown]

NARRATIVE: CASE EVENT DATE: 201908
